FAERS Safety Report 11457479 (Version 1)
Quarter: 2015Q3

REPORT INFORMATION
  Report Type: Spontaneous
  Country: BR (occurrence: BR)
  Receive Date: 20150904
  Receipt Date: 20150904
  Transmission Date: 20151125
  Serious: Yes (Hospitalization, Other)
  Sender: FDA-Public Use
  Company Number: BR-ROCHE-1626612

PATIENT
  Age: 81 Year
  Sex: Female

DRUGS (7)
  1. OXALIPLATIN. [Suspect]
     Active Substance: OXALIPLATIN
     Indication: COLORECTAL ADENOCARCINOMA
     Route: 065
     Dates: start: 20120713
  2. AVASTIN [Suspect]
     Active Substance: BEVACIZUMAB
     Indication: COLORECTAL ADENOCARCINOMA
     Route: 065
  3. XELODA [Suspect]
     Active Substance: CAPECITABINE
     Route: 065
  4. IRINOTECAN [Suspect]
     Active Substance: IRINOTECAN
     Indication: COLORECTAL ADENOCARCINOMA
     Route: 065
  5. XELODA [Suspect]
     Active Substance: CAPECITABINE
     Indication: COLORECTAL ADENOCARCINOMA
     Route: 065
     Dates: start: 20120713
  6. FLUOROURACIL. [Suspect]
     Active Substance: FLUOROURACIL
     Indication: COLORECTAL ADENOCARCINOMA
     Route: 065
     Dates: start: 20141001
  7. FOLINIC ACID [Suspect]
     Active Substance: LEUCOVORIN
     Indication: COLORECTAL ADENOCARCINOMA
     Route: 065
     Dates: start: 20141001

REACTIONS (16)
  - Thyroid adenoma [Unknown]
  - Metastases to peritoneum [Unknown]
  - Asthenia [Unknown]
  - Ovarian cyst [Unknown]
  - Atelectasis [Unknown]
  - Incisional hernia [Unknown]
  - Palmar-plantar erythrodysaesthesia syndrome [Unknown]
  - Lymph node calcification [Unknown]
  - Neutropenia [Unknown]
  - Carcinoembryonic antigen increased [Unknown]
  - Subileus [Recovered/Resolved]
  - Hepatic calcification [Unknown]
  - Pulmonary mass [Unknown]
  - Decreased appetite [Recovering/Resolving]
  - Rectal tenesmus [Recovering/Resolving]
  - Therapy responder [Unknown]

NARRATIVE: CASE EVENT DATE: 20130205
